FAERS Safety Report 19498304 (Version 10)
Quarter: 2022Q1

REPORT INFORMATION
  Report Type: Report from Study
  Country: US (occurrence: US)
  Receive Date: 20210706
  Receipt Date: 20220301
  Transmission Date: 20220423
  Serious: Yes (Other)
  Sender: FDA-Public Use
  Company Number: US-NOVARTISPH-NVSC2021US139524

PATIENT
  Sex: Female

DRUGS (2)
  1. ENTRESTO [Suspect]
     Active Substance: SACUBITRIL\VALSARTAN
     Indication: Cardiac failure
     Dosage: 50 MG, BID (24/26 MG)
     Route: 048
     Dates: start: 20210525
  2. ENTRESTO [Suspect]
     Active Substance: SACUBITRIL\VALSARTAN
     Dosage: 100 MG (49/51 MG), BID
     Route: 048

REACTIONS (15)
  - Cardiac flutter [Recovering/Resolving]
  - Paraesthesia [Recovering/Resolving]
  - Hypoaesthesia [Unknown]
  - Weight fluctuation [Unknown]
  - Tooth disorder [Unknown]
  - Dyspepsia [Unknown]
  - Stress [Unknown]
  - Weight increased [Unknown]
  - Sensation of foreign body [Unknown]
  - Depressed mood [Recovering/Resolving]
  - Vaccination site inflammation [Unknown]
  - Arthritis [Unknown]
  - Arthralgia [Unknown]
  - Asthenia [Unknown]
  - Dizziness [Unknown]
